FAERS Safety Report 7706727-8 (Version None)
Quarter: 2011Q3

REPORT INFORMATION
  Report Type: 
  Country: None (occurrence: None)
  Receive Date: 20110818
  Receipt Date: 20110804
  Transmission Date: 20111222
  Serious: Yes (Disabling)
  Sender: FDA-Public Use
  Company Number: AUR-APL-2011-04549

PATIENT
  Age: 7 Decade
  Sex: Female
  Weight: 51 kg

DRUGS (1)
  1. LISINOPRIL [Suspect]
     Indication: HYPERTENSION
     Dosage: (10 MG,),ORAL
     Route: 048
     Dates: start: 20100201, end: 20110201

REACTIONS (6)
  - SERUM FERRITIN INCREASED [None]
  - EOSINOPHILIC OESOPHAGITIS [None]
  - RENAL IMPAIRMENT [None]
  - WEIGHT DECREASED [None]
  - DYSGEUSIA [None]
  - NORMOCHROMIC NORMOCYTIC ANAEMIA [None]
